FAERS Safety Report 9710780 (Version 2)
Quarter: 2013Q4

REPORT INFORMATION
  Report Type: Spontaneous
  Country: US (occurrence: US)
  Receive Date: 20131126
  Receipt Date: 20131126
  Transmission Date: 20140711
  Serious: No
  Sender: FDA-Public Use
  Company Number: US-BRISTOL-MYERS SQUIBB COMPANY-18999029

PATIENT
  Age: 55 Year
  Sex: Female
  Weight: 95.24 kg

DRUGS (21)
  1. BYETTA [Suspect]
     Indication: TYPE 2 DIABETES MELLITUS
     Route: 058
     Dates: start: 20130429, end: 20130614
  2. HUMULIN [Suspect]
     Dosage: 70/30 72UNITS,INJ
     Route: 058
     Dates: start: 201211
  3. PANTOPRAZOLE [Suspect]
     Dates: start: 20130322, end: 20130520
  4. DEXLANSOPRAZOLE [Suspect]
     Dates: start: 201305
  5. FENOFIBRATE [Concomitant]
  6. SIMVASTATIN [Concomitant]
  7. LEVOTHYROXINE [Concomitant]
  8. VITAMIN D3 [Concomitant]
  9. OXYCODONE [Concomitant]
     Dosage: 2 TABLETS Q. 4 HOURS
  10. AMLODIPINE [Concomitant]
  11. QUINAPRIL [Concomitant]
  12. BENZONATATE [Concomitant]
     Indication: COUGH
     Dosage: 100MG CAPS
  13. METOCLOPRAMIDE [Concomitant]
  14. AMLACTIN [Concomitant]
     Dosage: 12% CREAM 1APP
  15. TAMSULOSIN [Concomitant]
     Dosage: 0.4MG CAPS
  16. FISH OIL [Concomitant]
     Dosage: CAPS
  17. INSULIN [Concomitant]
     Dosage: 1CC WITH 30G NEEDLE,BID
  18. LEVOTHROID [Concomitant]
     Dosage: 0.15MG TABS
  19. ALBUTEROL [Concomitant]
     Dosage: 2 PUFFS 4 TIMES A DAY,AS NEEDED
  20. NORVASC [Concomitant]
  21. PERCOCET [Concomitant]
     Dosage: 10/325 TABS,1 TO 2 TABS Q4HRS

REACTIONS (9)
  - Injection site pruritus [Unknown]
  - Decreased appetite [Unknown]
  - Skin disorder [Unknown]
  - Malaise [Unknown]
  - Blood glucose abnormal [Unknown]
  - Pruritus generalised [Unknown]
  - Nausea [Recovering/Resolving]
  - Vomiting [Recovering/Resolving]
  - Rash [Recovering/Resolving]
